FAERS Safety Report 6125578-1 (Version None)
Quarter: 2009Q1

REPORT INFORMATION
  Report Type: 
  Country: None (occurrence: None)
  Receive Date: 20090320
  Receipt Date: 20090306
  Transmission Date: 20090719
  Serious: Yes (Hospitalization)
  Sender: FDA-Public Use
  Company Number: SE-BAYER-200915992GPV

PATIENT
  Age: 42 Year
  Sex: Female

DRUGS (8)
  1. MIRENA IUS (LEVONORGESTREL) [Suspect]
     Indication: CONTRACEPTION
     Route: 015
     Dates: start: 20020301, end: 20070306
  2. MISOPROSTOL [Suspect]
     Indication: DRUG USE FOR UNKNOWN INDICATION
     Dates: start: 20070306
  3. MIRENA IUS (LEVONORGESTREL) [Suspect]
     Route: 015
     Dates: start: 20070306
  4. CIPROFLOXACIN [Concomitant]
     Indication: PYELONEPHRITIS
  5. OMEPRAZOLE [Concomitant]
     Indication: GASTRITIS
     Route: 048
     Dates: start: 20071214
  6. FLAGYL [Concomitant]
     Indication: SINUSITIS
     Dosage: TOTAL DAILY DOSE: 1200 MG
     Route: 048
     Dates: start: 20071214, end: 20071224
  7. FLAGYL [Concomitant]
     Dosage: TOTAL DAILY DOSE: 1200 MG
     Route: 048
     Dates: start: 20071010, end: 20071020
  8. KAVEFRUNIN [Concomitant]
     Indication: SINUSITIS
     Dosage: TOTAL DAILY DOSE: 1600 MG
     Route: 048
     Dates: start: 20071214, end: 20071224

REACTIONS (3)
  - DRUG HYPERSENSITIVITY [None]
  - PYELONEPHRITIS [None]
  - SEPSIS [None]
